FAERS Safety Report 8770510 (Version 1)
Quarter: 2012Q4

REPORT INFORMATION
  Report Type: 
  Country: JP (occurrence: JP)
  Receive Date: 20120906
  Receipt Date: 20120906
  Transmission Date: 20130627
  Serious: Yes (Other)
  Sender: FDA-Public Use
  Company Number: JP-PFIZER INC-2012218987

PATIENT
  Age: 38 Year
  Sex: Male

DRUGS (2)
  1. CELECOX [Suspect]
     Dosage: 100 mg, 2x/day
     Route: 048
  2. SOLETON [Suspect]
     Dosage: UNK
     Route: 048

REACTIONS (7)
  - Liver disorder [Unknown]
  - Acute abdomen [Unknown]
  - Pyrexia [Unknown]
  - Abdominal pain [Unknown]
  - Diarrhoea [Unknown]
  - Paraesthesia [Unknown]
  - Pain [Unknown]
